FAERS Safety Report 8816216 (Version 3)
Quarter: 2012Q4

REPORT INFORMATION
  Report Type: 
  Country: US (occurrence: US)
  Receive Date: 20120930
  Receipt Date: 20121203
  Transmission Date: 20130627
  Serious: Yes (Other)
  Sender: FDA-Public Use
  Company Number: US-ELI_LILLY_AND_COMPANY-US201209005154

PATIENT
  Age: 15 Year
  Sex: Female
  Weight: 52.1 kg

DRUGS (6)
  1. STRATTERA [Suspect]
     Indication: ATTENTION DEFICIT/HYPERACTIVITY DISORDER
     Dosage: 10 mg, UNK
  2. STRATTERA [Suspect]
     Dosage: 18 mg, UNK
  3. STRATTERA [Suspect]
     Dosage: 25 mg, UNK
     Dates: end: 2012
  4. STRATTERA [Suspect]
     Dosage: 10 mg, qd
     Route: 048
     Dates: start: 20120911, end: 20120919
  5. DEPAKOTE [Concomitant]
     Dosage: 1 DF, tid
  6. ATARAX [Concomitant]
     Indication: ANXIETY
     Dosage: 1 DF, prn

REACTIONS (1)
  - Livedo reticularis [Recovered/Resolved]
